FAERS Safety Report 23873836 (Version 1)
Quarter: 2024Q2

REPORT INFORMATION
  Report Type: Spontaneous
  Country: US (occurrence: None)
  Receive Date: 20240517
  Receipt Date: 20240517
  Transmission Date: 20240716
  Serious: Yes (Death)
  Sender: FDA-Public Use
  Company Number: None

PATIENT
  Age: 34 Year
  Sex: Female

DRUGS (1)
  1. PREVYMIS [Suspect]
     Active Substance: LETERMOVIR
     Indication: Stem cell transplant
     Dosage: FREQ: TAKE 1 TABLET (480 MG TOTAL) BY MOUTH DAILY.?
     Route: 048
     Dates: start: 20240417

REACTIONS (1)
  - Death [None]

NARRATIVE: CASE EVENT DATE: 20240506
